FAERS Safety Report 5612232-5 (Version None)
Quarter: 2008Q1

REPORT INFORMATION
  Report Type: 
  Country: None (occurrence: None)
  Receive Date: 20080204
  Receipt Date: 20080131
  Transmission Date: 20080703
  Serious: Yes (Other)
  Sender: FDA-Public Use
  Company Number: US-GENENTECH-253798

PATIENT
  Sex: Female

DRUGS (4)
  1. EFALIZUMAB [Suspect]
     Indication: SWEAT GLAND INFECTION
     Dosage: 0.7 ML, X2
     Route: 058
     Dates: start: 20051214, end: 20060309
  2. EFALIZUMAB [Suspect]
     Dosage: 0.9 ML, 1/WEEK
     Route: 058
     Dates: end: 20060301
  3. COREG [Concomitant]
     Indication: DRUG USE FOR UNKNOWN INDICATION
     Dosage: 50 MG, QD
     Dates: start: 20031201
  4. DAIRYCARE [Concomitant]
     Indication: LACTOSE INTOLERANCE
     Dosage: 2 TABLET, QD
     Dates: start: 20021201

REACTIONS (6)
  - BREAST CANCER [None]
  - CONDITION AGGRAVATED [None]
  - DRUG INEFFECTIVE [None]
  - PYREXIA [None]
  - SWEAT GLAND INFECTION [None]
  - VOMITING [None]
